FAERS Safety Report 7997319-4 (Version None)
Quarter: 2011Q4

REPORT INFORMATION
  Report Type: 
  Country: None (occurrence: None)
  Receive Date: 20111221
  Receipt Date: 20111212
  Transmission Date: 20120403
  Serious: Yes (Hospitalization)
  Sender: FDA-Public Use
  Company Number: DE-TEVA-313223GER

PATIENT
  Age: 74 Year
  Sex: Male

DRUGS (8)
  1. ASPIRIN [Concomitant]
     Dosage: 100 MILLIGRAM;
  2. PANTOPRAZOLE [Concomitant]
     Dosage: 40 MILLIGRAM;
  3. IRINOTECAN HCL [Suspect]
     Indication: COLORECTAL CANCER
     Route: 042
     Dates: start: 20111103, end: 20111103
  4. LEUCOVORIN CALCIUM [Suspect]
     Indication: COLORECTAL CANCER
     Route: 042
     Dates: start: 20111103, end: 20111103
  5. FLUOROURACIL [Suspect]
     Indication: COLORECTAL CANCER
     Route: 042
     Dates: start: 20111103, end: 20111104
  6. ACTRAPHANE HM [Concomitant]
     Route: 058
  7. CETUXIMAB [Suspect]
     Indication: COLORECTAL CANCER
     Route: 042
     Dates: start: 20111103, end: 20111103
  8. AMLODIPINE 5 [Concomitant]
     Dosage: 1 DOSAGE FORMS;

REACTIONS (1)
  - SYNCOPE [None]
